FAERS Safety Report 25840188 (Version 1)
Quarter: 2025Q3

REPORT INFORMATION
  Report Type: Spontaneous
  Country: TR (occurrence: TR)
  Receive Date: 20250924
  Receipt Date: 20250924
  Transmission Date: 20251021
  Serious: Yes (Other)
  Sender: ALEXION PHARMACEUTICALS
  Company Number: TR-ASTRAZENECA-202509TUR017464TR

PATIENT
  Age: 73 Year
  Sex: Male

DRUGS (1)
  1. CALQUENCE [Suspect]
     Active Substance: ACALABRUTINIB
     Indication: Lymphoma
     Dosage: UNK, BID

REACTIONS (2)
  - Faecal occult blood positive [Unknown]
  - Melaena [Unknown]

NARRATIVE: CASE EVENT DATE: 20250905
